FAERS Safety Report 6525013-5 (Version None)
Quarter: 2010Q1

REPORT INFORMATION
  Report Type: 
  Country: None (occurrence: None)
  Receive Date: 20100104
  Receipt Date: 20091222
  Transmission Date: 20100710
  Serious: Yes (Other)
  Sender: FDA-Public Use
  Company Number: US-PFIZER INC-2009298102

PATIENT
  Sex: Female
  Weight: 79.832 kg

DRUGS (2)
  1. LIPITOR [Suspect]
     Indication: BLOOD CHOLESTEROL INCREASED
     Dosage: 10 MG, 1X/DAY
  2. NORVASC [Concomitant]

REACTIONS (4)
  - ARTHRALGIA [None]
  - CARDIAC OPERATION [None]
  - CATARACT OPERATION [None]
  - MYALGIA [None]
